FAERS Safety Report 12803805 (Version 2)
Quarter: 2016Q4

REPORT INFORMATION
  Report Type: Spontaneous
  Country: PT (occurrence: PT)
  Receive Date: 20161003
  Receipt Date: 20161004
  Transmission Date: 20170207
  Serious: Yes (Hospitalization)
  Sender: FDA-Public Use
  Company Number: PHHY2016PT134762

PATIENT
  Age: 63 Year
  Sex: Female

DRUGS (1)
  1. CICLOSPORIN [Suspect]
     Active Substance: CYCLOSPORINE
     Indication: PITYRIASIS RUBRA PILARIS
     Dosage: 5 MG/KG, QD
     Route: 065

REACTIONS (2)
  - Dermatosis [Recovered/Resolved]
  - Product use issue [Unknown]
